FAERS Safety Report 13502241 (Version 1)
Quarter: 2017Q2

REPORT INFORMATION
  Report Type: Spontaneous
  Country: FR (occurrence: FR)
  Receive Date: 20170502
  Receipt Date: 20170502
  Transmission Date: 20170830
  Serious: Yes (Hospitalization)
  Sender: FDA-Public Use
  Company Number: FR-009507513-1705FRA000109

PATIENT
  Age: 66 Year
  Sex: Male

DRUGS (5)
  1. ERYTHROMYCIN. [Suspect]
     Active Substance: ERYTHROMYCIN
     Dosage: 125 MG, BID
     Route: 048
     Dates: start: 20170412, end: 20170415
  2. ONDANSETRON [Suspect]
     Active Substance: ONDANSETRON
     Dosage: 2.6667 MG,QD (8 MG IN 3 DAYS)
     Route: 042
  3. LEVOFLOXACIN. [Suspect]
     Active Substance: LEVOFLOXACIN
     Dosage: 500 MG, QD
     Route: 048
     Dates: start: 20170412
  4. EMEND [Suspect]
     Active Substance: APREPITANT
     Dosage: 125 MG, QD
     Route: 048
     Dates: start: 20170412, end: 20170414
  5. ALKERAN (MELPHALAN HYDROCHLORIDE) [Suspect]
     Active Substance: MELPHALAN HYDROCHLORIDE
     Indication: PLASMA CELL MYELOMA
     Dosage: 388 MG, QD
     Route: 042
     Dates: start: 20170412, end: 20170412

REACTIONS (1)
  - Clonic convulsion [Recovered/Resolved]

NARRATIVE: CASE EVENT DATE: 20170412
